FAERS Safety Report 6732516-7 (Version None)
Quarter: 2010Q2

REPORT INFORMATION
  Report Type: 
  Country: None (occurrence: None)
  Receive Date: 20100519
  Receipt Date: 20100504
  Transmission Date: 20101027
  Serious: Yes (Hospitalization, Other)
  Sender: FDA-Public Use
  Company Number: US-BAYER-201014260NA

PATIENT
  Age: 42 Year
  Sex: Female
  Weight: 61 kg

DRUGS (10)
  1. YASMIN [Suspect]
     Indication: ORAL CONTRACEPTION
     Dosage: START: JAN 2003 AND/OR MAR 2003 (DISCREGPANCY WITH DATES ON PFS) AND STOP ON 15-DEC-2006
     Route: 048
     Dates: start: 20030101, end: 20061215
  2. YAZ [Suspect]
     Indication: ORAL CONTRACEPTION
     Route: 048
     Dates: start: 20090430, end: 20090725
  3. KADIAN [Concomitant]
     Indication: FIBROMYALGIA
     Dates: start: 20080101
  4. AMBIEN [Concomitant]
     Indication: FIBROMYALGIA
     Dates: start: 20060101
  5. HYDROCODONE [Concomitant]
     Indication: FIBROMYALGIA
     Dates: start: 20060101
  6. MORPHINE SULFATE [Concomitant]
     Indication: FIBROMYALGIA
     Dates: start: 20080101
  7. FLUIDS [Concomitant]
     Indication: ABDOMINAL PAIN
     Route: 042
  8. HYDROMORPHONE HCL [Concomitant]
     Indication: ABDOMINAL PAIN
  9. ZOFRAN [Concomitant]
     Indication: ABDOMINAL PAIN
  10. PROTONIX [Concomitant]
     Indication: ABDOMINAL PAIN

REACTIONS (1)
  - CHOLECYSTITIS ACUTE [None]
